FAERS Safety Report 17573510 (Version 3)
Quarter: 2020Q2

REPORT INFORMATION
  Report Type: Report from Study
  Country: US (occurrence: US)
  Receive Date: 20200323
  Receipt Date: 20200604
  Transmission Date: 20200713
  Serious: No
  Sender: FDA-Public Use
  Company Number: NVSC2020US082161

PATIENT
  Age: 37 Year
  Sex: Female

DRUGS (1)
  1. ADAKVEO [Suspect]
     Active Substance: CRIZANLIZUMAB-TMCA
     Indication: SICKLE CELL DISEASE
     Dosage: UNK UNK, QMO (INTRAVENOUS INTO BLOODSTREAM VIA VEIN)
     Route: 042
     Dates: start: 20200228, end: 20200313

REACTIONS (3)
  - Arthralgia [Recovered/Resolved]
  - Back pain [Recovered/Resolved]
  - Somnolence [Recovered/Resolved]

NARRATIVE: CASE EVENT DATE: 20200228
